FAERS Safety Report 8217327-8 (Version None)
Quarter: 2012Q1

REPORT INFORMATION
  Report Type: 
  Country: None (occurrence: None)
  Receive Date: 20120319
  Receipt Date: 20120308
  Transmission Date: 20120608
  Serious: Yes (Other)
  Sender: FDA-Public Use
  Company Number: US-BAYER-2012-024485

PATIENT
  Age: 62 Year
  Sex: Male

DRUGS (2)
  1. NEXAVAR [Suspect]
     Indication: HEPATIC NEOPLASM MALIGNANT
     Dosage: 400 MG, BID
     Dates: start: 20120109, end: 20120305
  2. ZOMETA [Concomitant]

REACTIONS (5)
  - FLUID RETENTION [None]
  - DYSPNOEA [None]
  - ABDOMINAL PAIN [None]
  - HEPATIC NEOPLASM MALIGNANT [None]
  - OEDEMA [None]
